FAERS Safety Report 11216922 (Version 1)
Quarter: 2015Q2

REPORT INFORMATION
  Report Type: Spontaneous
  Country: US (occurrence: US)
  Receive Date: 20150624
  Receipt Date: 20150624
  Transmission Date: 20150821
  Serious: No
  Sender: FDA-Public Use
  Company Number: US-ASTRAZENECA-2015SE60018

PATIENT
  Sex: Female

DRUGS (1)
  1. ARIMIDEX [Suspect]
     Active Substance: ANASTROZOLE
     Route: 048

REACTIONS (9)
  - Insomnia [Unknown]
  - Hypoaesthesia [Unknown]
  - Drug dose omission [Unknown]
  - Burning sensation [Unknown]
  - Arthralgia [Unknown]
  - Trigger finger [Unknown]
  - Middle insomnia [Unknown]
  - Hypokinesia [Unknown]
  - Bone pain [Unknown]
